FAERS Safety Report 9457421 (Version 1)
Quarter: 2013Q3

REPORT INFORMATION
  Report Type: Spontaneous
  Country: US (occurrence: None)
  Receive Date: 20130812
  Receipt Date: 20130812
  Transmission Date: 20140515
  Serious: Yes (Hospitalization, Disabling)
  Sender: FDA-Public Use
  Company Number: None

PATIENT
  Age: 72 Year
  Sex: Female
  Weight: 72.58 kg

DRUGS (1)
  1. NEUPRO AL SY 2 MG FOR 7 DAYS; 4 MG FOR 7 DAYS UCB INC. SMYNA GEORGIA [Suspect]
     Indication: PARKINSON^S DISEASE
     Dates: start: 20130524, end: 20130607

REACTIONS (9)
  - Dysarthria [None]
  - Feeling abnormal [None]
  - Hallucination [None]
  - Abnormal behaviour [None]
  - Unresponsive to stimuli [None]
  - Blood sodium decreased [None]
  - Blood pressure increased [None]
  - Incontinence [None]
  - Amnesia [None]
